FAERS Safety Report 21307384 (Version 1)
Quarter: 2022Q3

REPORT INFORMATION
  Report Type: Spontaneous
  Country: AR (occurrence: AR)
  Receive Date: 20220908
  Receipt Date: 20220908
  Transmission Date: 20221026
  Serious: Yes (Other)
  Sender: FDA-Public Use
  Company Number: AR-PFIZER INC-PV202200059226

PATIENT
  Age: 76 Year
  Sex: Female

DRUGS (3)
  1. IBRANCE [Suspect]
     Active Substance: PALBOCICLIB
     Dosage: 125 MG
  2. FULVESTRANT [Concomitant]
     Active Substance: FULVESTRANT
     Dosage: 500 MG
  3. BENADRYL [Concomitant]
     Active Substance: DIPHENHYDRAMINE HYDROCHLORIDE
     Dosage: UNK

REACTIONS (8)
  - Aortic arteriosclerosis [Unknown]
  - Hiatus hernia [Unknown]
  - Spinal osteoarthritis [Unknown]
  - Diverticulum [Unknown]
  - Granuloma [Unknown]
  - Elastofibroma [Unknown]
  - Thyroid disorder [Unknown]
  - Vascular calcification [Unknown]

NARRATIVE: CASE EVENT DATE: 20210217
